FAERS Safety Report 10215229 (Version 3)
Quarter: 2014Q2

REPORT INFORMATION
  Report Type: Spontaneous
  Country: JP (occurrence: JP)
  Receive Date: 20140603
  Receipt Date: 20140624
  Transmission Date: 20141212
  Serious: Yes (Other)
  Sender: FDA-Public Use
  Company Number: PHHY2014JP066489

PATIENT
  Age: 75 Year
  Sex: Female

DRUGS (7)
  1. NEORAL [Suspect]
     Indication: ANTINEUTROPHIL CYTOPLASMIC ANTIBODY
     Dosage: 100 MG, DAILY IN TWO DIVIDED DOSES
     Route: 048
     Dates: end: 20140528
  2. NEORAL [Suspect]
     Indication: VASCULITIS
  3. NEORAL [Suspect]
     Indication: OFF LABEL USE
  4. FEBURIC [Concomitant]
     Dosage: 20 MG, UNK
     Route: 048
  5. THYRADIN S [Concomitant]
     Dosage: 75 UG, UNK
     Route: 048
  6. PREDONINE [Concomitant]
     Dosage: 7.5 MG, UNK
     Route: 048
  7. CALFINA [Concomitant]
     Dosage: 0.5 UG, UNK
     Route: 048

REACTIONS (8)
  - Leukoencephalopathy [Recovering/Resolving]
  - Hallucination, auditory [Recovered/Resolved]
  - Psychiatric symptom [Recovered/Resolved]
  - Delusion [Recovered/Resolved]
  - Disorientation [Recovered/Resolved]
  - Renal failure [Unknown]
  - Blood creatinine increased [Unknown]
  - Immunosuppressant drug level increased [Unknown]
